FAERS Safety Report 14155178 (Version 5)
Quarter: 2018Q2

REPORT INFORMATION
  Report Type: Spontaneous
  Country: JP (occurrence: JP)
  Receive Date: 20171103
  Receipt Date: 20180627
  Transmission Date: 20180711
  Serious: Yes (Other)
  Sender: FDA-Public Use
  Company Number: JP-009507513-1711JPN000050J

PATIENT
  Age: 83 Year
  Sex: Male

DRUGS (13)
  1. TAKEPRON [Concomitant]
     Active Substance: LANSOPRAZOLE
     Indication: CHRONIC GASTRITIS
     Dosage: 15 MG, QD
     Route: 048
     Dates: start: 2002
  2. MUCODYNE [Concomitant]
     Active Substance: CARBOCYSTEINE
     Indication: CHRONIC OBSTRUCTIVE PULMONARY DISEASE
     Dosage: 500 MG, TID
     Route: 048
     Dates: start: 20150827
  3. ZOLINZA [Suspect]
     Active Substance: VORINOSTAT
     Dosage: 300 MG, 5 X PER WEEK
     Route: 048
     Dates: start: 20160317, end: 20160404
  4. ZOLINZA [Suspect]
     Active Substance: VORINOSTAT
     Indication: PERIPHERAL T-CELL LYMPHOMA UNSPECIFIED
     Dosage: 400 MG, 5 X PER WEEK
     Route: 048
     Dates: start: 20151110, end: 20151216
  5. ZOLINZA [Suspect]
     Active Substance: VORINOSTAT
     Dosage: 400 MG, 5 X PER WEEK
     Route: 048
     Dates: start: 20160209, end: 20160308
  6. ZOLINZA [Suspect]
     Active Substance: VORINOSTAT
     Dosage: 300 MG, 5 X PER WEEK
     Route: 048
     Dates: start: 20151217, end: 20160106
  7. BAYASPIRIN [Concomitant]
     Active Substance: ASPIRIN
     Indication: PRINZMETAL ANGINA
     Dosage: 100 MG, QD
     Route: 048
     Dates: start: 2002
  8. ZOLINZA [Suspect]
     Active Substance: VORINOSTAT
     Dosage: 300 MG, TIW
     Route: 048
     Dates: start: 20160511, end: 20160622
  9. ZOLINZA [Suspect]
     Active Substance: VORINOSTAT
     Dosage: 300 MG, TIW
     Route: 048
     Dates: start: 20160706, end: 20160802
  10. ISCOTIN [Concomitant]
     Active Substance: ISONIAZID
     Indication: CHRONIC OBSTRUCTIVE PULMONARY DISEASE
     Dosage: 300 MG, QD
     Route: 048
     Dates: start: 20150812
  11. HERBESSER [Concomitant]
     Active Substance: DILTIAZEM HYDROCHLORIDE
     Indication: PRINZMETAL ANGINA
     Dosage: 100 MG, BID
     Route: 048
     Dates: start: 2002
  12. PRAVASTATIN SODIUM. [Concomitant]
     Active Substance: PRAVASTATIN SODIUM
     Indication: HYPERLIPIDAEMIA
     Dosage: 10 MG, QD
     Route: 048
     Dates: start: 2002, end: 20170404
  13. SIGMART [Concomitant]
     Active Substance: NICORANDIL
     Indication: PRINZMETAL ANGINA
     Dosage: 5 MG, BID
     Route: 048
     Dates: start: 20101201, end: 20170517

REACTIONS (6)
  - Epigastric discomfort [Recovered/Resolved]
  - Weight decreased [Recovered/Resolved]
  - Peripheral T-cell lymphoma unspecified [Unknown]
  - Dysgeusia [Recovered/Resolved]
  - Bone marrow failure [Recovered/Resolved]
  - Decreased appetite [Recovered/Resolved]

NARRATIVE: CASE EVENT DATE: 20151113
